FAERS Safety Report 5861874-0 (Version None)
Quarter: 2008Q3

REPORT INFORMATION
  Report Type: 
  Country: None (occurrence: None)
  Receive Date: 20080827
  Receipt Date: 20080718
  Transmission Date: 20090109
  Serious: No
  Sender: FDA-Public Use
  Company Number: US-ABBOTT-08P-163-0464097-00

PATIENT
  Sex: Male
  Weight: 114 kg

DRUGS (8)
  1. NIASPAN [Suspect]
     Indication: HIGH DENSITY LIPOPROTEIN DECREASED
     Dosage: AT BEDTIME
     Route: 048
     Dates: start: 20080520
  2. ASPIRIN AND DIPYRIDAMOLE [Concomitant]
     Indication: CEREBROVASCULAR ACCIDENT
     Route: 048
     Dates: start: 20080501
  3. FLUOXETINE [Concomitant]
     Indication: DEPRESSION
     Route: 048
     Dates: start: 19930101
  4. TOLTERODINE TARTRATE [Concomitant]
     Indication: BLADDER DISORDER
     Route: 048
     Dates: start: 20080101
  5. PIOGLITAZONE [Concomitant]
     Indication: DIABETES MELLITUS
     Dosage: DAILY IN AM
     Route: 048
     Dates: start: 20000101
  6. ATORVASTATIN CALCIUM [Concomitant]
     Indication: BLOOD TRIGLYCERIDES INCREASED
     Route: 048
     Dates: start: 20000101
  7. LATANOPROST [Concomitant]
     Indication: GLAUCOMA
     Dosage: 1DROP EACH EYE DAILY
     Route: 047
     Dates: start: 20020101
  8. GALENIC /DORZOLAMIDE/TIMOLOL/ [Concomitant]
     Indication: GLAUCOMA
     Dosage: ONE DROP IN LEFT EYE
     Route: 047
     Dates: start: 20020101

REACTIONS (1)
  - BLOOD GLUCOSE INCREASED [None]
